FAERS Safety Report 8951118 (Version 2)
Quarter: 2013Q1

REPORT INFORMATION
  Report Type: Report from Study
  Country: US (occurrence: US)
  Receive Date: 20121207
  Receipt Date: 20130228
  Transmission Date: 20140127
  Serious: Yes (Hospitalization)
  Sender: FDA-Public Use
  Company Number: US-UCBSA-072239

PATIENT
  Age: 50 Year
  Sex: Female
  Weight: 154 kg

DRUGS (1)
  1. CERTOLIZUMAB PEGOL [Suspect]

REACTIONS (2)
  - Hallucination [Unknown]
  - Psychogenic seizure [Unknown]
